FAERS Safety Report 5910603-0 (Version None)
Quarter: 2008Q4

REPORT INFORMATION
  Report Type: 
  Country: None (occurrence: None)
  Receive Date: 20081007
  Receipt Date: 20081007
  Transmission Date: 20090506
  Serious: Yes (Other)
  Sender: FDA-Public Use
  Company Number: A0750733A

PATIENT
  Age: 40 Year
  Sex: Male

DRUGS (1)
  1. ALLI [Suspect]
     Indication: WEIGHT LOSS DIET
     Route: 048
     Dates: start: 20080701, end: 20080801

REACTIONS (6)
  - ABDOMINAL PAIN UPPER [None]
  - ANAL PRURITUS [None]
  - ANORECTAL DISCOMFORT [None]
  - DIARRHOEA [None]
  - RECTAL DISCHARGE [None]
  - RECTAL HAEMORRHAGE [None]
